FAERS Safety Report 9638372 (Version 1)
Quarter: 2013Q4

REPORT INFORMATION
  Report Type: Spontaneous
  Country: US (occurrence: US)
  Receive Date: 20131022
  Receipt Date: 20131022
  Transmission Date: 20140711
  Serious: Yes (Other)
  Sender: FDA-Public Use
  Company Number: US-GLAXOSMITHKLINE-B0932584A

PATIENT
  Sex: Female

DRUGS (3)
  1. LETAIRIS [Suspect]
     Indication: PULMONARY ARTERIAL HYPERTENSION
     Route: 048
     Dates: start: 201301
  2. ADCIRCA [Suspect]
     Indication: PRODUCT USED FOR UNKNOWN INDICATION
  3. FLOLAN [Suspect]
     Indication: PRODUCT USED FOR UNKNOWN INDICATION
     Route: 042

REACTIONS (9)
  - Cardiac failure [Unknown]
  - Cardiomegaly [Unknown]
  - Malaise [Unknown]
  - Hepatomegaly [Unknown]
  - Splenomegaly [Unknown]
  - Pain [Unknown]
  - Ileus [Unknown]
  - Pulmonary hypertension [Unknown]
  - Disease progression [Unknown]
